FAERS Safety Report 25386099 (Version 1)
Quarter: 2025Q2

REPORT INFORMATION
  Report Type: Spontaneous
  Country: CN (occurrence: CN)
  Receive Date: 20250602
  Receipt Date: 20250602
  Transmission Date: 20250717
  Serious: Yes (Other)
  Sender: RANBAXY
  Company Number: CN-SUN PHARMACEUTICAL INDUSTRIES LTD-2025R1-509348

PATIENT
  Age: 79 Year
  Sex: Male

DRUGS (3)
  1. CEFOPERAZONE [Interacting]
     Active Substance: CEFOPERAZONE
     Indication: Pneumonia bacterial
     Route: 065
  2. SODIUM CHLORIDE [Interacting]
     Active Substance: SODIUM CHLORIDE
     Indication: Pneumonia bacterial
     Route: 065
  3. AMBROXOL HYDROCHLORIDE [Interacting]
     Active Substance: AMBROXOL HYDROCHLORIDE
     Indication: Pneumonia bacterial
     Route: 065

REACTIONS (2)
  - Drug interaction [Unknown]
  - Product contamination [Unknown]
